FAERS Safety Report 7333064-6 (Version None)
Quarter: 2011Q1

REPORT INFORMATION
  Report Type: 
  Country: None (occurrence: None)
  Receive Date: 20110304
  Receipt Date: 20110302
  Transmission Date: 20110831
  Serious: Yes (Other)
  Sender: FDA-Public Use
  Company Number: US-PFIZER INC-2011046480

PATIENT
  Sex: Male
  Weight: 88.4 kg

DRUGS (6)
  1. CARDIZEM [Concomitant]
     Dosage: UNK
  2. PINDOLOL [Concomitant]
     Dosage: UNK
  3. TIKOSYN [Suspect]
     Indication: ATRIAL FIBRILLATION
     Dosage: 250 UG, 2X/DAY
     Route: 048
     Dates: start: 20101101
  4. LOVAZA [Concomitant]
     Dosage: UNK
  5. CO-Q-10 [Concomitant]
     Dosage: UNK
  6. TIKOSYN [Suspect]
     Indication: ATRIAL FLUTTER

REACTIONS (1)
  - ATRIAL FIBRILLATION [None]
